FAERS Safety Report 23673879 (Version 1)
Quarter: 2024Q1

REPORT INFORMATION
  Report Type: Spontaneous
  Country: US (occurrence: None)
  Receive Date: 20240325
  Receipt Date: 20240325
  Transmission Date: 20240410
  Serious: Yes (Other)
  Sender: FDA-Public Use
  Company Number: None

PATIENT
  Age: 66 Year
  Sex: Male
  Weight: 83.25 kg

DRUGS (1)
  1. VUITY [Suspect]
     Active Substance: PILOCARPINE HYDROCHLORIDE
     Indication: Photosensitivity reaction

REACTIONS (7)
  - Retinal tear [None]
  - Retinal detachment [None]
  - Blindness unilateral [None]
  - Retinal degeneration [None]
  - Product prescribing issue [None]
  - Quality of life decreased [None]
  - Drug monitoring procedure not performed [None]

NARRATIVE: CASE EVENT DATE: 20220401
